FAERS Safety Report 5400388-9 (Version None)
Quarter: 2007Q3

REPORT INFORMATION
  Report Type: 
  Country: None (occurrence: None)
  Receive Date: 20070730
  Receipt Date: 20070718
  Transmission Date: 20080115
  Serious: Yes (Hospitalization)
  Sender: FDA-Public Use
  Company Number: B0477470A

PATIENT
  Age: 56 Year
  Sex: Female

DRUGS (3)
  1. AMOXICILLIN TRIHYDRATE [Suspect]
     Indication: GASTRIC ULCER HELICOBACTER
     Dosage: 750MG TWICE PER DAY
     Route: 048
     Dates: start: 20070611, end: 20070616
  2. RABEPRAZOLE SODIUM [Suspect]
     Indication: GASTRIC ULCER HELICOBACTER
     Dosage: 10MG TWICE PER DAY
     Route: 048
     Dates: start: 20070609, end: 20070616
  3. CLARITHROMYCIN [Suspect]
     Indication: GASTRIC ULCER HELICOBACTER
     Dosage: 400MG TWICE PER DAY
     Route: 048
     Dates: start: 20070609, end: 20070616

REACTIONS (3)
  - OROPHARYNGEAL SWELLING [None]
  - RASH [None]
  - RASH PAPULAR [None]
